FAERS Safety Report 25653874 (Version 1)
Quarter: 2025Q3

REPORT INFORMATION
  Report Type: Spontaneous
  Country: JP (occurrence: JP)
  Receive Date: 20250807
  Receipt Date: 20250807
  Transmission Date: 20251020
  Serious: Yes (Other)
  Sender: TAKEDA
  Company Number: JP-TAKEDA-2025TUS069870

PATIENT
  Age: 33 Year
  Sex: Male

DRUGS (10)
  1. LIALDA [Suspect]
     Active Substance: MESALAMINE
     Indication: Colitis ulcerative
     Dosage: 4800 MILLIGRAM, QD
     Dates: start: 20181101
  2. Cortiment [Concomitant]
     Indication: Colitis ulcerative
  3. Cortiment [Concomitant]
  4. MESALAMINE [Concomitant]
     Active Substance: MESALAMINE
     Indication: Colitis ulcerative
  5. BUDESONIDE [Concomitant]
     Active Substance: BUDESONIDE
     Indication: Colitis ulcerative
  6. BUDESONIDE [Concomitant]
     Active Substance: BUDESONIDE
  7. BUDESONIDE [Concomitant]
     Active Substance: BUDESONIDE
  8. BUDESONIDE [Concomitant]
     Active Substance: BUDESONIDE
  9. PREDNISOLONE [Concomitant]
     Active Substance: PREDNISOLONE
     Indication: Colitis ulcerative
     Dosage: 40 MILLIGRAM, QD
     Dates: start: 201911, end: 202002
  10. AZATHIOPRINE [Concomitant]
     Active Substance: AZATHIOPRINE
     Indication: Colitis ulcerative
     Dosage: 75 MILLIGRAM, QD
     Dates: start: 202301, end: 202304

REACTIONS (6)
  - Renal cancer [Recovered/Resolved]
  - Melaena [Unknown]
  - Large intestine erosion [Unknown]
  - Haematochezia [Unknown]
  - Drug ineffective [Recovered/Resolved]
  - Defaecation urgency [Recovering/Resolving]

NARRATIVE: CASE EVENT DATE: 20190301
